FAERS Safety Report 6725265-2 (Version None)
Quarter: 2010Q2

REPORT INFORMATION
  Report Type: 
  Country: None (occurrence: None)
  Receive Date: 20100513
  Receipt Date: 20100513
  Transmission Date: 20101027
  Serious: No
  Sender: FDA-Public Use
  Company Number: None

PATIENT
  Age: 57 Year
  Sex: Female
  Weight: 62.5964 kg

DRUGS (5)
  1. HYDROXYCHLOROQUINE SULFATE [Suspect]
     Indication: RHEUMATOID ARTHRITIS
     Dosage: 200MG BID PO
     Route: 048
     Dates: start: 20060701
  2. LIPITOR [Concomitant]
  3. MOBIC [Concomitant]
  4. ACTONEL [Concomitant]
  5. NEXIUM [Concomitant]

REACTIONS (5)
  - ARTHRALGIA [None]
  - DIARRHOEA [None]
  - LIVER FUNCTION TEST ABNORMAL [None]
  - ORAL HERPES [None]
  - RASH [None]
